FAERS Safety Report 25441386 (Version 1)
Quarter: 2025Q2

REPORT INFORMATION
  Report Type: Spontaneous
  Country: US (occurrence: None)
  Receive Date: 20250613
  Receipt Date: 20250613
  Transmission Date: 20250717
  Serious: Yes (unspecified)
  Sender: FDA-CTU
  Company Number: None

PATIENT
  Age: 82 Year
  Sex: Female
  Weight: 95.25 kg

DRUGS (26)
  1. LEQVIO [Suspect]
     Active Substance: INCLISIRAN SODIUM
     Indication: Blood cholesterol increased
     Dates: start: 20250128, end: 20250128
  2. TOPIRAMATE [Concomitant]
     Active Substance: TOPIRAMATE
  3. LOSARTAN [Concomitant]
     Active Substance: LOSARTAN
  4. CLOPIDOGREL [Concomitant]
     Active Substance: CLOPIDOGREL BISULFATE
  5. PANTOPRAZOLE [Concomitant]
     Active Substance: PANTOPRAZOLE
  6. POTASSIUM [Concomitant]
     Active Substance: POTASSIUM
  7. ROSUVASTATIN [Concomitant]
     Active Substance: ROSUVASTATIN
  8. EZETIMIBE [Concomitant]
     Active Substance: EZETIMIBE
  9. MAGNESIUM OXIDE [Concomitant]
     Active Substance: MAGNESIUM OXIDE
  10. VITAMIN D3 [Concomitant]
     Active Substance: CHOLECALCIFEROL
  11. PEPCID [Concomitant]
     Active Substance: FAMOTIDINE
  12. ATACAND [Concomitant]
     Active Substance: CANDESARTAN CILEXETIL
  13. CLONIDINE [Concomitant]
     Active Substance: CLONIDINE
  14. AMILORIDE [Concomitant]
     Active Substance: AMILORIDE
  15. Apresoline ( Hydralazine) [Concomitant]
  16. K-DUR [Concomitant]
     Active Substance: POTASSIUM CHLORIDE
  17. PREVACID [Concomitant]
     Active Substance: LANSOPRAZOLE
  18. ALBUTEROL [Concomitant]
     Active Substance: ALBUTEROL
  19. Asmanex Twist Inhaler [Concomitant]
  20. ACCOLATE [Concomitant]
     Active Substance: ZAFIRLUKAST
  21. MUCINEX [Concomitant]
     Active Substance: GUAIFENESIN
  22. Tylenol 500 mgm [Concomitant]
  23. Vit D 3 [Concomitant]
  24. SENOKOT [Concomitant]
     Active Substance: SENNOSIDES
  25. MAGNESIUM [Concomitant]
     Active Substance: MAGNESIUM
  26. CALCIUM [Concomitant]
     Active Substance: CALCIUM

REACTIONS (7)
  - Cough [None]
  - Dyspnoea [None]
  - Muscular weakness [None]
  - Heart rate decreased [None]
  - Loss of personal independence in daily activities [None]
  - Influenza like illness [None]
  - Bronchitis [None]

NARRATIVE: CASE EVENT DATE: 20250128
